FAERS Safety Report 4439637-2 (Version None)
Quarter: 2004Q3

REPORT INFORMATION
  Report Type: 
  Country: None (occurrence: None)
  Receive Date: 20040831
  Receipt Date: 20040831
  Transmission Date: 20050211
  Serious: Yes (Other)
  Sender: FDA-Public Use
  Company Number: None

PATIENT
  Sex: Female
  Weight: 53.5244 kg

DRUGS (3)
  1. DYNACIRC [Suspect]
     Indication: HYPERTENSION
     Dosage: 5 MG BID OROPHARIGEAL
     Route: 049
     Dates: start: 20040712, end: 20040815
  2. SYNTHROID [Concomitant]
  3. HALCION [Concomitant]

REACTIONS (1)
  - ANGIONEUROTIC OEDEMA [None]
